FAERS Safety Report 5888277-7 (Version None)
Quarter: 2008Q3

REPORT INFORMATION
  Report Type: 
  Country: None (occurrence: None)
  Receive Date: 20080918
  Receipt Date: 20080910
  Transmission Date: 20090109
  Serious: Yes (Hospitalization)
  Sender: FDA-Public Use
  Company Number: FR-ASTRAZENECA-2008CG01325

PATIENT
  Age: 20335 Day
  Sex: Male

DRUGS (6)
  1. DIPRIVAN [Suspect]
     Indication: GENERAL ANAESTHESIA
     Route: 042
     Dates: start: 20070416, end: 20070416
  2. SEVORANE [Suspect]
     Indication: GENERAL ANAESTHESIA
     Route: 055
     Dates: start: 20070416, end: 20070416
  3. ULTIVA [Concomitant]
     Indication: GENERAL ANAESTHESIA
     Route: 042
     Dates: start: 20070416, end: 20070416
  4. TOPALGIC [Concomitant]
     Indication: PROCEDURAL PAIN
     Route: 048
     Dates: start: 20070416, end: 20070416
  5. PERFALGAN [Concomitant]
     Indication: PROCEDURAL PAIN
     Route: 042
     Dates: start: 20070416
  6. PROFENID [Concomitant]
     Indication: EYE OPERATION
     Route: 048
     Dates: start: 20070416, end: 20070416

REACTIONS (3)
  - DERMATITIS BULLOUS [None]
  - RASH PAPULAR [None]
  - RASH PUSTULAR [None]
